FAERS Safety Report 6935793-2 (Version None)
Quarter: 2010Q3

REPORT INFORMATION
  Report Type: 
  Country: None (occurrence: None)
  Receive Date: 20100823
  Receipt Date: 20100812
  Transmission Date: 20110219
  Serious: Yes (Death, Other)
  Sender: FDA-Public Use
  Company Number: JP-JNJFOC-20100701400

PATIENT
  Sex: Female
  Weight: 49 kg

DRUGS (14)
  1. DOXORUBICIN HYDROCHLORIDE [Suspect]
     Indication: OVARIAN CANCER RECURRENT
     Dosage: CYCLE 2
     Route: 042
  2. DOXORUBICIN HYDROCHLORIDE [Suspect]
     Dosage: CYCLE 8
     Route: 042
  3. DOXORUBICIN HYDROCHLORIDE [Suspect]
     Dosage: CYCLE 3
     Route: 042
  4. DOXORUBICIN HYDROCHLORIDE [Suspect]
     Dosage: CYCLE 4
     Route: 042
  5. DOXORUBICIN HYDROCHLORIDE [Suspect]
     Dosage: CYCLE 5
     Route: 042
  6. DOXORUBICIN HYDROCHLORIDE [Suspect]
     Dosage: CYCLE 6
     Route: 042
  7. DOXORUBICIN HYDROCHLORIDE [Suspect]
     Dosage: CYCLE 7
     Route: 042
  8. DOXORUBICIN HYDROCHLORIDE [Suspect]
     Dosage: CYCLE 1
     Route: 042
  9. AZUNOL [Concomitant]
     Indication: PROPHYLAXIS
     Route: 049
  10. DECADRON [Concomitant]
     Indication: PROPHYLAXIS
     Route: 048
  11. DECADRON [Concomitant]
     Route: 048
  12. DECADRON [Concomitant]
     Route: 048
  13. RAMELTEON [Concomitant]
     Indication: PROPHYLAXIS
     Route: 042
  14. VITAMEDIN [Concomitant]
     Indication: PROPHYLAXIS
     Route: 042

REACTIONS (2)
  - DEATH [None]
  - INTESTINAL OBSTRUCTION [None]
